FAERS Safety Report 9539392 (Version 1)
Quarter: 2013Q3

REPORT INFORMATION
  Report Type: Spontaneous
  Country: CA (occurrence: CA)
  Receive Date: 20130920
  Receipt Date: 20130920
  Transmission Date: 20140515
  Serious: Yes (Life-Threatening, Hospitalization)
  Sender: FDA-Public Use
  Company Number: CA-ROCHE-1276798

PATIENT
  Age: 14 Month
  Sex: 0

DRUGS (4)
  1. CEFTRIAXONE [Suspect]
     Indication: PRODUCT USED FOR UNKNOWN INDICATION
     Route: 042
  2. CEFOTAXIME [Suspect]
     Indication: PRODUCT USED FOR UNKNOWN INDICATION
     Route: 065
  3. CEFUROXIME [Suspect]
     Indication: PRODUCT USED FOR UNKNOWN INDICATION
     Route: 065
  4. VANCOMYCIN [Concomitant]
     Route: 065

REACTIONS (16)
  - Drug ineffective [Unknown]
  - Bacterial infection [Recovered/Resolved]
  - Coma scale abnormal [Recovered/Resolved]
  - Encephalitis [Recovered/Resolved]
  - Fontanelle bulging [Recovered/Resolved]
  - Meningitis bacterial [Recovered/Resolved]
  - Multi-organ disorder [Recovered/Resolved]
  - Neurological decompensation [Recovered/Resolved]
  - Pneumococcal sepsis [Recovered/Resolved]
  - Pyrexia [Recovered/Resolved]
  - Septic shock [Recovered/Resolved]
  - Blood culture positive [Unknown]
  - CSF culture positive [Unknown]
  - Computerised tomogram abnormal [Unknown]
  - Lumbar puncture abnormal [Unknown]
  - Meningitis pneumococcal [Unknown]
